FAERS Safety Report 17073565 (Version 2)
Quarter: 2019Q4

REPORT INFORMATION
  Report Type: Spontaneous
  Country: US (occurrence: US)
  Receive Date: 20191126
  Receipt Date: 20191226
  Transmission Date: 20200122
  Serious: No
  Sender: FDA-Public Use
  Company Number: US-JNJFOC-20191133772

PATIENT
  Age: 68 Year
  Sex: Male
  Weight: 88.53 kg

DRUGS (2)
  1. MENS ROGAINE [Suspect]
     Active Substance: MINOXIDIL
     Indication: ALOPECIA
     Route: 061
  2. BIOTIN [Concomitant]
     Active Substance: BIOTIN
     Indication: PRODUCT USED FOR UNKNOWN INDICATION
     Route: 065

REACTIONS (3)
  - Acne [Recovering/Resolving]
  - Application site irritation [Recovering/Resolving]
  - Application site dryness [Recovering/Resolving]

NARRATIVE: CASE EVENT DATE: 20191107
